FAERS Safety Report 24127435 (Version 1)
Quarter: 2024Q3

REPORT INFORMATION
  Report Type: Spontaneous
  Country: US (occurrence: US)
  Receive Date: 20240723
  Receipt Date: 20240723
  Transmission Date: 20241017
  Serious: Yes (Disabling, Other)
  Sender: SANOFI AVENTIS
  Company Number: US-SA-SAC20240722000547

PATIENT
  Sex: Female

DRUGS (12)
  1. DUPIXENT [Suspect]
     Active Substance: DUPILUMAB
     Indication: Dermatitis atopic
     Dosage: 300 MG, QOW
     Route: 058
  2. HYQVIA [Concomitant]
     Active Substance: HUMAN IMMUNOGLOBULIN G\HYALURONIDASE (HUMAN RECOMBINANT)
  3. AMLODIPINE [Concomitant]
     Active Substance: AMLODIPINE BESYLATE
  4. ATORVASTATIN [Concomitant]
     Active Substance: ATORVASTATIN
  5. CLOPIDOGREL [Concomitant]
     Active Substance: CLOPIDOGREL BISULFATE
  6. EPINEPHRINE [Concomitant]
     Active Substance: EPINEPHRINE
  7. FUROSEMIDE [Concomitant]
     Active Substance: FUROSEMIDE
  8. ISOSORBIDE [Concomitant]
     Active Substance: ISOSORBIDE
  9. LOSARTAN POTASSIUM [Concomitant]
     Active Substance: LOSARTAN POTASSIUM
  10. SYNTHROID [Concomitant]
     Active Substance: LEVOTHYROXINE SODIUM
  11. TIMOLOL MALEATE [Concomitant]
     Active Substance: TIMOLOL MALEATE
  12. NITROGLYCERIN [Concomitant]
     Active Substance: NITROGLYCERIN

REACTIONS (16)
  - Loss of personal independence in daily activities [Unknown]
  - Precancerous condition [Unknown]
  - Pigmentation disorder [Unknown]
  - Pustule [Unknown]
  - Immunodeficiency [Unknown]
  - Osteonecrosis [Unknown]
  - Ventricular extrasystoles [Unknown]
  - Poor quality sleep [Unknown]
  - Skin atrophy [Unknown]
  - Lower limb fracture [Unknown]
  - General physical health deterioration [Unknown]
  - COVID-19 [Unknown]
  - Influenza [Unknown]
  - Injection site bruising [Unknown]
  - Arthralgia [Unknown]
  - Chemotherapy [Unknown]
